FAERS Safety Report 4738021-1 (Version None)
Quarter: 2005Q3

REPORT INFORMATION
  Report Type: 
  Country: None (occurrence: None)
  Receive Date: 20050803
  Receipt Date: 20050708
  Transmission Date: 20060218
  Serious: Yes (Life-Threatening)
  Sender: FDA-Public Use
  Company Number: GBS050717847

PATIENT
  Age: 64 Year
  Sex: Female

DRUGS (2)
  1. EVISTA [Suspect]
     Indication: OSTEOPOROSIS
     Dates: start: 20050531, end: 20050610
  2. NASONEX [Concomitant]

REACTIONS (3)
  - COUGH [None]
  - DYSPHAGIA [None]
  - PHARYNGEAL OEDEMA [None]
